FAERS Safety Report 8593641 (Version 2)
Quarter: 2013Q2

REPORT INFORMATION
  Report Type: Spontaneous
  Country: US (occurrence: US)
  Receive Date: 20120604
  Receipt Date: 20130618
  Transmission Date: 20140414
  Serious: Yes (Disabling)
  Sender: FDA-Public Use
  Company Number: US-ASTRAZENECA-2012SE35009

PATIENT
  Sex: Male

DRUGS (1)
  1. NEXIUM [Suspect]
     Route: 048

REACTIONS (10)
  - Back pain [Unknown]
  - Osteoarthritis [Unknown]
  - Osteogenesis imperfecta [Unknown]
  - Lower limb fracture [Unknown]
  - Bone pain [Unknown]
  - Intervertebral disc degeneration [Unknown]
  - Musculoskeletal pain [Unknown]
  - Osteoporosis [Unknown]
  - Multiple fractures [Unknown]
  - Pain [Unknown]
